FAERS Safety Report 24118650 (Version 1)
Quarter: 2024Q3

REPORT INFORMATION
  Report Type: Spontaneous
  Country: US (occurrence: None)
  Receive Date: 20240718
  Receipt Date: 20240718
  Transmission Date: 20241017
  Serious: Yes (Hospitalization)
  Sender: Public
  Company Number: None

PATIENT
  Sex: Male

DRUGS (3)
  1. ADYNOVATE [Suspect]
     Active Substance: ANTIHEMOPHILIC FACTOR, HUMAN RECOMBINANT
     Indication: Factor VIII deficiency
     Dosage: OTHER QUANTITY : 3600 UNITS;?FREQUENCY : TWICE A WEEK;?OTHER ROUTE : SLOW IV PUSH;?INFUSE 3600 UNITS
     Route: 050
     Dates: start: 202303
  2. ADYNOVATE [Suspect]
     Active Substance: ANTIHEMOPHILIC FACTOR, HUMAN RECOMBINANT
     Indication: Factor VIII deficiency
     Dosage: OTHER QUANTITY : 3600 UNITS;?FREQUENCY : TWICE A WEEK;?OTHER ROUTE : SLOW IV PUSH ;?INFUSE 3600 UNIT
     Route: 050
     Dates: start: 202303
  3. DEVICE [Concomitant]
     Active Substance: DEVICE

REACTIONS (1)
  - Post procedural haemorrhage [None]

NARRATIVE: CASE EVENT DATE: 20240628
